FAERS Safety Report 7392805-2 (Version None)
Quarter: 2011Q2

REPORT INFORMATION
  Report Type: 
  Country: None (occurrence: None)
  Receive Date: 20110404
  Receipt Date: 20110324
  Transmission Date: 20111010
  Serious: Yes (Hospitalization, Other)
  Sender: FDA-Public Use
  Company Number: JP-BAYER-2011-023555

PATIENT
  Age: 50 Year
  Sex: Female

DRUGS (1)
  1. ASPIRIN [Suspect]
     Indication: HEADACHE
     Route: 048

REACTIONS (4)
  - FAECES DISCOLOURED [None]
  - SMALL INTESTINAL HAEMORRHAGE [None]
  - DIVERTICULUM INTESTINAL HAEMORRHAGIC [None]
  - HAEMATEMESIS [None]
